FAERS Safety Report 9279335 (Version 2)
Quarter: 2013Q2

REPORT INFORMATION
  Report Type: Spontaneous
  Country: JP (occurrence: None)
  Receive Date: 20130501
  Receipt Date: 20130523
  Transmission Date: 20140414
  Serious: Yes (Hospitalization, Other)
  Sender: FDA-Public Use
  Company Number: JP-2012-14058

PATIENT
  Age: 48 Year
  Sex: Female
  Weight: 42.5 kg

DRUGS (8)
  1. OPC-41061 [Suspect]
     Indication: CONGENITAL CYSTIC KIDNEY DISEASE
     Route: 048
     Dates: start: 20110819, end: 20120321
  2. OLMETEC (OLMESARTAN MEDOXOMIL) [Concomitant]
  3. FERROMIA (FERROUS SODIUM CITRATE) [Concomitant]
  4. LAXOBERON (SODIUM PICOSULFATE) [Concomitant]
  5. DAIKENTYUTO (HERBAL EXTRACT NOS) [Concomitant]
  6. MAGMITT (MAGNESIUM OXIDE) [Concomitant]
  7. ALOSENN (ACHILLEA MILLEFOLIUM, RUBIA TINCTORUM ROOT TINCTURE, SENNA ALEXANDRINA FRUIT, SENNA ALEXANDRINA LEAF, TARAXACUM OFFICINALE) [Concomitant]
  8. ZENOL (CAMPHOR, DIPHENHYDRAMINE HYDROCHLORIDE, GLYCOL SALICY [Concomitant]

REACTIONS (5)
  - Acute monocytic leukaemia [None]
  - Uterine leiomyoma [None]
  - Ileus [None]
  - Cardiomyopathy [None]
  - Pleural effusion [None]
